FAERS Safety Report 4674096-6 (Version None)
Quarter: 2005Q2

REPORT INFORMATION
  Report Type: 
  Country: None (occurrence: None)
  Receive Date: 20050524
  Receipt Date: 20050524
  Transmission Date: 20051028
  Serious: Yes (Other)
  Sender: FDA-Public Use
  Company Number: None

PATIENT
  Age: 49 Year
  Sex: Female
  Weight: 67.1324 kg

DRUGS (1)
  1. CRESTOR [Suspect]
     Indication: BLOOD CHOLESTEROL INCREASED
     Dosage: 1 PER DAY ORAL
     Route: 048
     Dates: start: 20041212, end: 20050128

REACTIONS (3)
  - IMPAIRED WORK ABILITY [None]
  - MUSCLE SPASMS [None]
  - PAIN IN EXTREMITY [None]
